FAERS Safety Report 9401605 (Version 3)
Quarter: 2013Q3

REPORT INFORMATION
  Report Type: Spontaneous
  Country: US (occurrence: US)
  Receive Date: 20130716
  Receipt Date: 20130902
  Transmission Date: 20140515
  Serious: Yes (Death)
  Sender: FDA-Public Use
  Company Number: US-BIOGENIDEC-2013BI063448

PATIENT
  Age: 57 Year
  Sex: Female

DRUGS (10)
  1. TYSABRI [Suspect]
     Indication: MULTIPLE SCLEROSIS
     Route: 042
     Dates: start: 20121031, end: 20130627
  2. AVONEX [Concomitant]
     Indication: MULTIPLE SCLEROSIS
     Route: 030
     Dates: start: 20020906
  3. BENADRYL [Concomitant]
  4. TYLENOL [Concomitant]
  5. VICTOZA [Concomitant]
  6. VALIUM [Concomitant]
  7. ZOLOFT [Concomitant]
  8. LISINOPRIL [Concomitant]
  9. JANUMET [Concomitant]
  10. GABAPENTIN [Concomitant]

REACTIONS (2)
  - Cardiac arrest [Fatal]
  - Myocardial infarction [Fatal]
